FAERS Safety Report 11279985 (Version 4)
Quarter: 2020Q3

REPORT INFORMATION
  Report Type: Report from Study
  Country: MY (occurrence: MY)
  Receive Date: 20150717
  Receipt Date: 20170111
  Transmission Date: 20201105
  Serious: Yes (Other)
  Sender: FDA-Public Use
  Company Number: MY-BAXALTA-2015BAX013361

PATIENT

DRUGS (3)
  1. PEGYLATED COAGULATION FACTOR VIII [Suspect]
     Active Substance: ANTIHEMOPHILIC FACTOR, PEGYLATED (MW 20000) HUMAN SEQUENCE RECOMBINANT
     Indication: PROPHYLAXIS
     Dosage: LAST ADMINISTRATION PRIOR TO EVENT
     Route: 042
     Dates: start: 20141110, end: 20141110
  2. PEGYLATED COAGULATION FACTOR VIII [Suspect]
     Active Substance: ANTIHEMOPHILIC FACTOR, PEGYLATED (MW 20000) HUMAN SEQUENCE RECOMBINANT
     Indication: PROPHYLAXIS
     Dosage: LAST ADMINISTRATION PRIOR TO EVENT
     Route: 042
     Dates: start: 20141110, end: 20141110
  3. DIACEREIN [Concomitant]
     Active Substance: DIACEREIN
     Indication: HAEMOPHILIC ARTHROPATHY
     Dosage: 50MILLIGRAM2X A DAY
     Route: 048
     Dates: start: 2007

REACTIONS (3)
  - Exposure via body fluid [Recovered/Resolved]
  - Abortion spontaneous [Recovered/Resolved]
  - Exposure during pregnancy [Recovered/Resolved]

NARRATIVE: CASE EVENT DATE: 20141010
